FAERS Safety Report 5086929-2 (Version None)
Quarter: 2006Q3

REPORT INFORMATION
  Report Type: 
  Country: None (occurrence: None)
  Receive Date: 20060818
  Receipt Date: 20060806
  Transmission Date: 20061208
  Serious: Yes (Hospitalization, Other)
  Sender: FDA-Public Use
  Company Number: 2006096936

PATIENT
  Sex: Male

DRUGS (5)
  1. SOMAVERT [Suspect]
     Indication: ACROMEGALY
     Dosage: 10 MG (10 MG, 1 IN 1 D), SUBCUTANEOUS
     Route: 058
     Dates: start: 20040701
  2. ALTACE [Concomitant]
  3. LIPITOR [Concomitant]
  4. HYDROCHLOROTHIAZIDE [Concomitant]
  5. AMNESTEEM [Concomitant]

REACTIONS (2)
  - INSULIN-LIKE GROWTH FACTOR INCREASED [None]
  - THROMBOSIS [None]
